FAERS Safety Report 4441642-7 (Version None)
Quarter: 2004Q3

REPORT INFORMATION
  Report Type: 
  Country: None (occurrence: None)
  Receive Date: 20040907
  Receipt Date: 20020212
  Transmission Date: 20050211
  Serious: Yes (Hospitalization)
  Sender: FDA-Public Use
  Company Number: DE-AMGEN-02020330

PATIENT
  Sex: Female

DRUGS (8)
  1. ENBREL [Suspect]
     Indication: RHEUMATOID ARTHRITIS
     Dates: start: 20010401, end: 20020201
  2. DECORTIN [Concomitant]
  3. METOPROLOL [Concomitant]
  4. CELEBREX [Concomitant]
  5. PANTOPRAZOLE SODIUM [Concomitant]
  6. SANDOCAL [Concomitant]
  7. LANTAREL [Concomitant]
  8. FOLSAN [Concomitant]

REACTIONS (1)
  - MYELITIS [None]
